FAERS Safety Report 20338478 (Version 1)
Quarter: 2022Q1

REPORT INFORMATION
  Report Type: Spontaneous
  Country: None (occurrence: A1)
  Receive Date: 20220115
  Receipt Date: 20220115
  Transmission Date: 20220423
  Serious: Yes (Death, Hospitalization, Other)
  Sender: FDA-Public Use
  Company Number: A1-Acella Pharmaceuticals, LLC-2123972

PATIENT
  Age: 80 Year
  Sex: Male

DRUGS (6)
  1. DOXYCYCLINE [Suspect]
     Active Substance: DOXYCYCLINE
     Indication: Skin infection
     Route: 065
  2. ASPIRIN [Concomitant]
     Active Substance: ASPIRIN
     Route: 065
  3. NEBIVOLOL [Concomitant]
     Active Substance: NEBIVOLOL
     Route: 065
  4. FENOFIBRATE [Concomitant]
     Active Substance: FENOFIBRATE
     Route: 065
  5. LOVASTATIN [Concomitant]
     Active Substance: LOVASTATIN
     Route: 065
  6. TAMSULOSIN HYDROCHLORIDE [Concomitant]
     Active Substance: TAMSULOSIN HYDROCHLORIDE
     Route: 065

REACTIONS (12)
  - Contusion [Unknown]
  - Acquired haemophilia [Unknown]
  - Haematoma [Unknown]
  - Ecchymosis [Unknown]
  - Anaemia [Unknown]
  - Coagulopathy [Unknown]
  - Neutropenic sepsis [Unknown]
  - COVID-19 pneumonia [Unknown]
  - Acute respiratory distress syndrome [Unknown]
  - Acute respiratory failure [Fatal]
  - Acute kidney injury [Fatal]
  - Death [Fatal]
